FAERS Safety Report 8501878-2 (Version None)
Quarter: 2012Q3

REPORT INFORMATION
  Report Type: 
  Country: None (occurrence: None)
  Receive Date: 20120711
  Receipt Date: 20120706
  Transmission Date: 20120928
  Serious: Yes (Other)
  Sender: FDA-Public Use
  Company Number: PHEH2012US011993

PATIENT
  Sex: Male

DRUGS (4)
  1. ZOCOR [Concomitant]
     Dosage: 20 MG, DAILY
  2. ACIDOPHILUS [Concomitant]
     Dosage: UNK UKN, UNK
  3. CARBAMAZEPINE [Suspect]
     Indication: CONVULSION
     Dosage: 100 MG, TWO IN THE MORNING AND THREE IN THE EVENING
     Route: 048
     Dates: start: 20080908
  4. ASPIRIN [Concomitant]
     Dosage: 81 MG, DAILY

REACTIONS (3)
  - CONVULSION [None]
  - FLANK PAIN [None]
  - ABDOMINAL PAIN [None]
